FAERS Safety Report 24142568 (Version 1)
Quarter: 2024Q3

REPORT INFORMATION
  Report Type: Spontaneous
  Country: ES (occurrence: ES)
  Receive Date: 20240726
  Receipt Date: 20240726
  Transmission Date: 20241017
  Serious: No
  Sender: ALNYLAM PHARMACEUTICALS
  Company Number: ES-ALNYLAM PHARMACEUTICALS, INC.-ALN-2024-004066

PATIENT

DRUGS (1)
  1. AMVUTTRA [Suspect]
     Active Substance: VUTRISIRAN
     Indication: Product used for unknown indication
     Dosage: UNK (25 MG/0,5 ML)
     Route: 065

REACTIONS (2)
  - Device malfunction [Unknown]
  - Device connection issue [Unknown]
